FAERS Safety Report 7170551-8 (Version None)
Quarter: 2010Q4

REPORT INFORMATION
  Report Type: 
  Country: None (occurrence: None)
  Receive Date: 20101217
  Receipt Date: 20101201
  Transmission Date: 20110411
  Serious: No
  Sender: FDA-Public Use
  Company Number: US-B.I. PHARMACEUTICALS,INC./RIDGEFIELD-2010-BP-13730BP

PATIENT
  Sex: Male

DRUGS (16)
  1. PRADAXA [Suspect]
     Indication: ATRIAL FIBRILLATION
     Dosage: 300 MG
     Route: 048
     Dates: start: 20101122
  2. LOTREL [Concomitant]
     Route: 048
     Dates: start: 20030101
  3. DIOVAN [Concomitant]
     Indication: CARDIAC DISORDER
     Dosage: 320 MG
     Route: 048
     Dates: start: 20030101
  4. ALLOPURINOL [Concomitant]
     Indication: GOUT
     Dosage: 100 MG
     Route: 048
     Dates: start: 19900101
  5. TOPROL-XL [Concomitant]
     Indication: CARDIAC DISORDER
     Route: 048
     Dates: start: 20030101
  6. TOPROL-XL [Concomitant]
  7. HYDROCHLOROTHIAZIDE [Concomitant]
     Indication: FLUID RETENTION
     Dosage: 25 MG
     Route: 048
     Dates: start: 19900101
  8. CHANTIX [Concomitant]
     Indication: SMOKING CESSATION THERAPY
     Route: 048
     Dates: start: 20100801
  9. ADVAIR [Concomitant]
     Indication: CHRONIC OBSTRUCTIVE PULMONARY DISEASE
     Route: 055
     Dates: start: 20030101
  10. COMBIVENT [Concomitant]
     Indication: CHRONIC OBSTRUCTIVE PULMONARY DISEASE
     Route: 055
     Dates: start: 20030101
  11. HYTRIN [Concomitant]
     Dosage: 2 MG
     Route: 048
     Dates: start: 20030101
  12. SPIRIVA [Concomitant]
     Indication: CHRONIC OBSTRUCTIVE PULMONARY DISEASE
     Route: 055
     Dates: start: 20100101
  13. PROSCAR [Concomitant]
     Indication: PROSTATOMEGALY
     Dosage: 5 MG
     Route: 048
     Dates: start: 20030101
  14. SIMCOR [Concomitant]
     Route: 048
     Dates: start: 20060101
  15. HALCION [Concomitant]
     Indication: SLEEP DISORDER
     Dosage: 0.25 MG
     Route: 048
     Dates: start: 20000101
  16. GLUCOPHAGE [Concomitant]
     Indication: DIABETES MELLITUS
     Route: 048
     Dates: start: 20030101

REACTIONS (5)
  - ARTHRALGIA [None]
  - GOUT [None]
  - MUSCLE SPASMS [None]
  - OEDEMA PERIPHERAL [None]
  - PRURITUS [None]
